FAERS Safety Report 21802723 (Version 1)
Quarter: 2022Q4

REPORT INFORMATION
  Report Type: Spontaneous
  Country: US (occurrence: US)
  Receive Date: 20221231
  Receipt Date: 20221231
  Transmission Date: 20230113
  Serious: No
  Sender: FDA-Public Use
  Company Number: US-MACLEODS PHARMACEUTICALS US LTD-MAC2022038975

PATIENT

DRUGS (2)
  1. OSELTAMIVIR [Suspect]
     Active Substance: OSELTAMIVIR
     Indication: COVID-19
     Dosage: 75 MILLIGRAM, BID (75 MG IN THE MORNING AND 75 MG IN THE NIGHT FOR 2 DAYS)
     Route: 065
     Dates: start: 20221215, end: 20221216
  2. LISINOPRIL [Concomitant]
     Active Substance: LISINOPRIL
     Indication: Product used for unknown indication
     Dosage: UNK
     Route: 065

REACTIONS (4)
  - Dysphonia [Unknown]
  - Pruritus [Unknown]
  - Throat irritation [Unknown]
  - Urticaria [Unknown]

NARRATIVE: CASE EVENT DATE: 20221216
